FAERS Safety Report 15990637 (Version 1)
Quarter: 2019Q1

REPORT INFORMATION
  Report Type: Spontaneous
  Country: US (occurrence: US)
  Receive Date: 20190221
  Receipt Date: 20190221
  Transmission Date: 20190418
  Serious: Yes (Hospitalization, Other)
  Sender: FDA-Public Use
  Company Number: None

PATIENT
  Age: 23 Year
  Sex: Female
  Weight: 67.5 kg

DRUGS (6)
  1. VITAMIN D [Concomitant]
     Active Substance: CHOLECALCIFEROL
  2. MULTIVITAMIN [Concomitant]
     Active Substance: VITAMINS
  3. AIRBORNE [Concomitant]
     Active Substance: HERBALS\MINERALS\VITAMINS
  4. FISH OIL [Concomitant]
     Active Substance: FISH OIL
  5. BIOTIN [Concomitant]
     Active Substance: BIOTIN
  6. NEXPLANON [Suspect]
     Active Substance: ETONOGESTREL
     Indication: CONTRACEPTION
     Route: 058
     Dates: start: 20190109, end: 20190221

REACTIONS (11)
  - Depressed mood [None]
  - Decreased appetite [None]
  - Eye pain [None]
  - Influenza like illness [None]
  - Back pain [None]
  - Headache [None]
  - Mood swings [None]
  - Drug hypersensitivity [None]
  - Suicidal ideation [None]
  - Insomnia [None]
  - Abdominal pain [None]

NARRATIVE: CASE EVENT DATE: 20190221
